FAERS Safety Report 6838405-1 (Version None)
Quarter: 2010Q3

REPORT INFORMATION
  Report Type: 
  Country: None (occurrence: None)
  Receive Date: 20100713
  Receipt Date: 20070612
  Transmission Date: 20110219
  Serious: No
  Sender: FDA-Public Use
  Company Number: US-PFIZER INC-2007049213

PATIENT
  Sex: Female
  Weight: 80.909 kg

DRUGS (2)
  1. CHANTIX [Suspect]
     Indication: SMOKING CESSATION THERAPY
     Dates: start: 20070501
  2. ZYRTEC-D 12 HOUR [Suspect]
     Indication: HYPERSENSITIVITY

REACTIONS (3)
  - ANXIETY [None]
  - DYSPNOEA [None]
  - IRRITABILITY [None]
